FAERS Safety Report 6628970-1 (Version None)
Quarter: 2010Q1

REPORT INFORMATION
  Report Type: 
  Country: None (occurrence: None)
  Receive Date: 20100311
  Receipt Date: 20090807
  Transmission Date: 20100710
  Serious: No
  Sender: FDA-Public Use
  Company Number: US-BIOGENIDEC-2009BI024784

PATIENT
  Age: 68 Year
  Sex: Female

DRUGS (2)
  1. AVONEX [Suspect]
     Indication: MULTIPLE SCLEROSIS
     Route: 030
     Dates: start: 20020101, end: 20080101
  2. AVONEX [Suspect]
     Route: 030
     Dates: start: 20080101

REACTIONS (4)
  - DIPLOPIA [None]
  - DYSGRAPHIA [None]
  - LOSS OF CONTROL OF LEGS [None]
  - VERTIGO [None]
